FAERS Safety Report 4536473-3 (Version None)
Quarter: 2004Q4

REPORT INFORMATION
  Report Type: 
  Country: None (occurrence: None)
  Receive Date: 20041220
  Receipt Date: 20041208
  Transmission Date: 20050328
  Serious: Yes (Hospitalization)
  Sender: FDA-Public Use
  Company Number: S04-USA-07808-01

PATIENT
  Age: 45 Year
  Sex: Male

DRUGS (2)
  1. LEXAPRO [Suspect]
     Indication: MAJOR DEPRESSION
     Dosage: 10 MG QD PO
     Route: 048
     Dates: end: 20040101
  2. TRAZODONE HCL [Suspect]
     Indication: MAJOR DEPRESSION
     Dates: end: 20040101

REACTIONS (2)
  - INFECTION [None]
  - PRIAPISM [None]
